FAERS Safety Report 10332201 (Version 3)
Quarter: 2015Q1

REPORT INFORMATION
  Report Type: Spontaneous
  Country: US (occurrence: US)
  Receive Date: 20140722
  Receipt Date: 20150119
  Transmission Date: 20150720
  Serious: No
  Sender: FDA-Public Use
  Company Number: US-UNITED THERAPEUTICS-UNT-2014-000515

PATIENT
  Age: 80 Year
  Sex: Female
  Weight: 89.34 kg

DRUGS (1)
  1. TYVASO [Suspect]
     Active Substance: TREPROSTINIL
     Indication: PULMONARY ARTERIAL HYPERTENSION
     Dosage: 18-54 ?G, QID
     Dates: start: 20140502

REACTIONS (10)
  - Abdominal pain [Unknown]
  - Cough [Unknown]
  - Flushing [Unknown]
  - Myalgia [Unknown]
  - Nausea [Unknown]
  - Abdominal discomfort [Unknown]
  - Faeces discoloured [Unknown]
  - Diarrhoea [Unknown]
  - Headache [Unknown]
  - Hot flush [Unknown]

NARRATIVE: CASE EVENT DATE: 201405
